FAERS Safety Report 14160604 (Version 1)
Quarter: 2017Q4

REPORT INFORMATION
  Report Type: Spontaneous
  Country: US (occurrence: US)
  Receive Date: 20171103
  Receipt Date: 20171103
  Transmission Date: 20180321
  Serious: Yes (Other)
  Sender: FDA-Public Use
  Company Number: None

PATIENT
  Age: 61 Year
  Sex: Female
  Weight: 73.35 kg

DRUGS (14)
  1. METOPROLOL SUCC ER [Concomitant]
     Active Substance: METOPROLOL SUCCINATE
  2. REPATHA [Concomitant]
     Active Substance: EVOLOCUMAB
  3. VITAMIN D3 [Concomitant]
     Active Substance: CHOLECALCIFEROL
  4. LEVOTHYROXINE. [Concomitant]
     Active Substance: LEVOTHYROXINE
  5. TRETINOIN. [Concomitant]
     Active Substance: TRETINOIN
  6. VITAMIN B12 [Concomitant]
     Active Substance: CYANOCOBALAMIN
  7. COQ10 [Concomitant]
     Active Substance: UBIDECARENONE
  8. BABY ASPIRIN [Concomitant]
     Active Substance: ASPIRIN
  9. POTASSIUM CHLORIDE ER [Concomitant]
     Active Substance: POTASSIUM CHLORIDE
  10. MODAFINIL. [Suspect]
     Active Substance: MODAFINIL
     Indication: NARCOLEPSY
     Dosage: ?          QUANTITY:30 TABLET(S);?
     Route: 048
     Dates: start: 20170222, end: 20170310
  11. ESTRACE [Concomitant]
     Active Substance: ESTRADIOL
  12. FUROSEMIDE. [Concomitant]
     Active Substance: FUROSEMIDE
  13. MULTI-VITAMIN [Concomitant]
     Active Substance: .ALPHA.-TOCOPHEROL ACETATE, DL-\ASCORBIC ACID\CYANOCOBALAMIN\FLUORIDE ION\FOLIC ACID\NIACIN\PYRIDOXINE\RIBOFLAVIN\THIAMINE\VITAMIN A\VITAMIN D
  14. CALCIUM SUPPLEMENT [Concomitant]
     Active Substance: CALCIUM

REACTIONS (7)
  - Neck pain [None]
  - Nausea [None]
  - Flatulence [None]
  - Diplopia [None]
  - Eyelid oedema [None]
  - Headache [None]
  - Neuropathy peripheral [None]

NARRATIVE: CASE EVENT DATE: 20170310
